FAERS Safety Report 8069191-8 (Version None)
Quarter: 2012Q1

REPORT INFORMATION
  Report Type: 
  Country: None (occurrence: None)
  Receive Date: 20120118
  Receipt Date: 20120109
  Transmission Date: 20120608
  Serious: Yes (Death)
  Sender: FDA-Public Use
  Company Number: JPI-P-014833

PATIENT
  Age: 84 Year
  Sex: Female

DRUGS (2)
  1. AMPHETAMINES [Concomitant]
  2. XYREM [Suspect]
     Indication: NARCOLEPSY
     Dosage: 4.5 GM (2.25 GM, 2 IN 1 D), ORAL
     Route: 048
     Dates: start: 20061020, end: 20060101

REACTIONS (3)
  - SEPSIS [None]
  - CEREBROVASCULAR ACCIDENT [None]
  - RENAL FAILURE [None]
